FAERS Safety Report 6107493-2 (Version None)
Quarter: 2009Q1

REPORT INFORMATION
  Report Type: 
  Country: None (occurrence: None)
  Receive Date: 20090309
  Receipt Date: 20090225
  Transmission Date: 20090719
  Serious: Yes (Other)
  Sender: FDA-Public Use
  Company Number: JP-PFIZER INC-2009163377

PATIENT

DRUGS (4)
  1. RIFABUTIN [Suspect]
     Dosage: 150 MG, 1X/DAY
     Dates: start: 20090107, end: 20090127
  2. CLARITHROMYCIN [Concomitant]
     Dosage: UNK
     Route: 048
  3. ETHAMBUTOL [Concomitant]
     Route: 048
     Dates: start: 20070124, end: 20090127
  4. HUSCODE [Concomitant]
     Route: 048
     Dates: start: 20070124, end: 20090127

REACTIONS (1)
  - RHABDOMYOLYSIS [None]
